FAERS Safety Report 8847117 (Version 1)
Quarter: 2012Q4

REPORT INFORMATION
  Report Type: Spontaneous
  Country: JP (occurrence: None)
  Receive Date: 20121016
  Receipt Date: 20121016
  Transmission Date: 20130627
  Serious: Yes (Hospitalization)
  Sender: FDA-Public Use
  Company Number: US-2012-10940

PATIENT
  Age: 44 Year
  Sex: Female

DRUGS (8)
  1. CILOSTAZOL [Suspect]
  2. PREDNISOLONE [Concomitant]
  3. AMLODIPINE [Concomitant]
  4. ATENOLOL [Concomitant]
  5. IMIDAPRIL [Concomitant]
  6. ASPIRIN [Concomitant]
  7. PRAVASTATIN (PRVASTATIN SODIUM) [Concomitant]
  8. FERROUS CITRATE [Concomitant]

REACTIONS (6)
  - Cardio-respiratory arrest [None]
  - Anaphylactoid reaction [None]
  - Loss of consciousness [None]
  - Coma [None]
  - Cardiac arrest [None]
  - Contrast media reaction [None]
